FAERS Safety Report 14925514 (Version 1)
Quarter: 2018Q2

REPORT INFORMATION
  Report Type: Spontaneous
  Country: US (occurrence: US)
  Receive Date: 20180522
  Receipt Date: 20180522
  Transmission Date: 20180711
  Serious: Yes (Other)
  Sender: FDA-Public Use
  Company Number: US-FRESENIUS KABI-FK201805913

PATIENT
  Sex: Male

DRUGS (2)
  1. ANASTROZOLE (MANUFACTURER UNKNOWN) [Suspect]
     Active Substance: ANASTROZOLE
     Indication: HYPEROESTROGENISM
     Route: 065
  2. CLOMIFENE [Suspect]
     Active Substance: CLOMIPHENE
     Indication: HYPEROESTROGENISM
     Route: 065

REACTIONS (5)
  - Headache [Unknown]
  - Haematocrit increased [Unknown]
  - Off label use [Unknown]
  - Vision blurred [Unknown]
  - Product use in unapproved indication [Unknown]
